FAERS Safety Report 4484698-8 (Version None)
Quarter: 2004Q3

REPORT INFORMATION
  Report Type: 
  Country: None (occurrence: None)
  Receive Date: 20040921
  Receipt Date: 20031117
  Transmission Date: 20050211
  Serious: Yes (Hospitalization)
  Sender: FDA-Public Use
  Company Number: 163-20785-03110363

PATIENT
  Age: 66 Year
  Sex: Female

DRUGS (7)
  1. THALOMID [Suspect]
     Indication: MULTIPLE MYELOMA
     Dosage: 200 MG, QHS, ORAL
     Route: 048
     Dates: start: 20030605, end: 20031101
  2. PREVACID [Concomitant]
  3. LASIX [Concomitant]
  4. KCI (POTASSIUM CHLORIDE) [Concomitant]
  5. TOPROL (METOPROLOL SUCCINATE) [Concomitant]
  6. IMDUR [Concomitant]
  7. NITRO (GLYCERYL TRINITRATE) [Concomitant]

REACTIONS (1)
  - LEUKAEMIA [None]
